FAERS Safety Report 13120062 (Version 1)
Quarter: 2017Q1

REPORT INFORMATION
  Report Type: Spontaneous
  Country: US (occurrence: US)
  Receive Date: 20170117
  Receipt Date: 20170117
  Transmission Date: 20170428
  Serious: Yes (Hospitalization, Other)
  Sender: FDA-Public Use
  Company Number: US-B.I. PHARMACEUTICALS,INC./RIDGEFIELD-2017-BI-002049

PATIENT
  Sex: Male

DRUGS (4)
  1. DULCOLAX (BISACODYL) [Suspect]
     Active Substance: BISACODYL
     Indication: CONSTIPATION
     Route: 048
     Dates: start: 2000
  2. DORZOLAMIDE/TIMOLOL OPHTHALMIC [Concomitant]
     Indication: GLAUCOMA
     Route: 065
     Dates: start: 2012
  3. TRAVATAN Z [Concomitant]
     Active Substance: TRAVOPROST
     Indication: GLAUCOMA
     Route: 065
     Dates: start: 2012
  4. BRIMONIDINE [Concomitant]
     Active Substance: BRIMONIDINE TARTRATE
     Indication: GLAUCOMA
     Route: 065
     Dates: start: 2012

REACTIONS (8)
  - Cough [Unknown]
  - Glaucoma [Unknown]
  - Mitral valve incompetence [Recovered/Resolved]
  - Polyp [Unknown]
  - Dyspepsia [Unknown]
  - Cardiac failure congestive [Unknown]
  - Cardiac arrest [Recovered/Resolved]
  - Atrial fibrillation [Unknown]

NARRATIVE: CASE EVENT DATE: 2003
